FAERS Safety Report 16869354 (Version 1)
Quarter: 2019Q3

REPORT INFORMATION
  Report Type: Spontaneous
  Country: US (occurrence: US)
  Receive Date: 20190930
  Receipt Date: 20190930
  Transmission Date: 20191005
  Serious: Yes (Other)
  Sender: FDA-Public Use
  Company Number: US-PFIZER INC-2019420039

PATIENT
  Age: 77 Year
  Sex: Male
  Weight: 86.18 kg

DRUGS (1)
  1. VFEND [Suspect]
     Active Substance: VORICONAZOLE
     Indication: MENINGITIS FUNGAL
     Dosage: 200 MG, 2X/DAY (200MG ONE IN MORNING AND ONE IN EVENING)

REACTIONS (3)
  - Blindness [Unknown]
  - Off label use [Unknown]
  - Product use in unapproved indication [Unknown]
